FAERS Safety Report 7173006-X (Version None)
Quarter: 2010Q4

REPORT INFORMATION
  Report Type: 
  Country: None (occurrence: None)
  Receive Date: 20101219
  Receipt Date: 20100217
  Transmission Date: 20110411
  Serious: No
  Sender: FDA-Public Use
  Company Number: US-AMGEN-KDL393628

PATIENT

DRUGS (6)
  1. ENBREL [Suspect]
     Indication: PRODUCT USED FOR UNKNOWN INDICATION
     Dosage: 50 MG, QWK
     Route: 058
  2. ASCORBIC ACID [Concomitant]
     Dosage: 500 MG, UNK
  3. TOCOPHEROL CONCENTRATE CAP [Concomitant]
     Dosage: 400 IU/KG, UNK
  4. LOVAZA [Concomitant]
     Dosage: UNK UNK, UNK
  5. MULTI-VITAMINS [Concomitant]
     Dosage: UNK UNK, UNK
  6. RESOURCE (PROTEIN POWDER) [Concomitant]

REACTIONS (2)
  - ABDOMINAL PAIN [None]
  - FATIGUE [None]
